FAERS Safety Report 22186245 (Version 1)
Quarter: 2023Q2

REPORT INFORMATION
  Report Type: Spontaneous
  Country: BR (occurrence: BR)
  Receive Date: 20230407
  Receipt Date: 20230407
  Transmission Date: 20230721
  Serious: Yes (Other)
  Sender: FDA-Public Use
  Company Number: BR-TAKEDA-2023TUS032318

PATIENT
  Sex: Female

DRUGS (2)
  1. MESALAMINE [Suspect]
     Active Substance: MESALAMINE
     Indication: Product used for unknown indication
     Dosage: UNK
     Route: 065
  2. MESALAMINE [Suspect]
     Active Substance: MESALAMINE
     Dosage: UNK
     Route: 065

REACTIONS (5)
  - Inflammatory bowel disease [Unknown]
  - Incorrect product administration duration [Unknown]
  - Product quality issue [Unknown]
  - Poor quality product administered [Unknown]
  - Product packaging issue [Unknown]
